FAERS Safety Report 23119119 (Version 1)
Quarter: 2023Q4

REPORT INFORMATION
  Report Type: Spontaneous
  Country: US (occurrence: US)
  Receive Date: 20231028
  Receipt Date: 20231028
  Transmission Date: 20240109
  Serious: Yes (Other)
  Sender: FDA-Public Use
  Company Number: US-drreddys-LIT/USA/23/0180767

PATIENT
  Sex: Female

DRUGS (6)
  1. COLCHICINE [Suspect]
     Active Substance: COLCHICINE
     Indication: Pericarditis
  2. IBUPROFEN [Suspect]
     Active Substance: IBUPROFEN
     Indication: Pericarditis
  3. PREDNISONE [Suspect]
     Active Substance: PREDNISONE
     Indication: Pericarditis
     Route: 048
  4. ANAKINRA [Suspect]
     Active Substance: ANAKINRA
     Indication: Pericarditis
     Dosage: 2 TO 4 INJECTIONS PER WEEK
     Route: 042
  5. ANAKINRA [Suspect]
     Active Substance: ANAKINRA
  6. NIFEDIPINE [Concomitant]
     Active Substance: NIFEDIPINE
     Indication: Pre-eclampsia

REACTIONS (3)
  - Treatment failure [Unknown]
  - Diarrhoea [Unknown]
  - Product use in unapproved indication [Unknown]
